FAERS Safety Report 9492934 (Version 1)
Quarter: 2013Q3

REPORT INFORMATION
  Report Type: Report from Study
  Country: GB (occurrence: GB)
  Receive Date: 20130902
  Receipt Date: 20130902
  Transmission Date: 20140515
  Serious: Yes (Hospitalization, Other)
  Sender: FDA-Public Use
  Company Number: GB-ROCHE-1268295

PATIENT
  Age: 73 Year
  Sex: Female
  Weight: 50 kg

DRUGS (4)
  1. RITUXIMAB [Suspect]
     Indication: RHEUMATOID ARTHRITIS
     Dosage: DATE OF LAST DOSE PRIOR TO ONSET OF FIRST EPISODE:10/MAY/2012.
     Route: 065
     Dates: start: 20080922
  2. SYMBICORT [Concomitant]
     Dosage: 100/6, 2 PUFF
     Route: 065
  3. PREDNISOLONE [Concomitant]
     Route: 065
  4. PARACETAMOL [Concomitant]

REACTIONS (2)
  - Infective exacerbation of chronic obstructive airways disease [Unknown]
  - Ankle fracture [Unknown]
